FAERS Safety Report 6911574-0 (Version None)
Quarter: 2010Q3

REPORT INFORMATION
  Report Type: 
  Country: None (occurrence: None)
  Receive Date: 20100806
  Receipt Date: 20100730
  Transmission Date: 20110219
  Serious: Yes (Other)
  Sender: FDA-Public Use
  Company Number: US-BAYER-201029562NA

PATIENT
  Sex: Female

DRUGS (2)
  1. YAZ [Suspect]
     Route: 048
     Dates: start: 20031001, end: 20090601
  2. YASMIN [Suspect]
     Route: 048
     Dates: start: 20031001, end: 20090601

REACTIONS (2)
  - ARRHYTHMIA [None]
  - INJURY [None]
